FAERS Safety Report 6550738-5 (Version None)
Quarter: 2010Q1

REPORT INFORMATION
  Report Type: 
  Country: None (occurrence: None)
  Receive Date: 20100125
  Receipt Date: 20100114
  Transmission Date: 20100710
  Serious: Yes (Hospitalization)
  Sender: FDA-Public Use
  Company Number: PHHY2010TW02094

PATIENT
  Age: 49 Year
  Sex: Female

DRUGS (5)
  1. CYCLOSPORINE [Suspect]
     Indication: RENAL TRANSPLANT
     Dosage: 200 MG/DAY
     Route: 042
  2. METHYLPREDNISOLONE SODIUM SUCCINATE [Suspect]
     Indication: RENAL TRANSPLANT
     Dosage: 40 MG/DAY
     Route: 042
  3. MYCOPHENOLATE MOFETIL [Suspect]
     Indication: RENAL TRANSPLANT
     Dosage: 2 MG/DAY
  4. TACROLIMUS [Concomitant]
     Indication: RENAL TRANSPLANT
     Dosage: 8 MG/DAY
  5. PREDNISOLONE [Concomitant]
     Indication: RENAL TRANSPLANT

REACTIONS (4)
  - HAEMODIALYSIS [None]
  - KIDNEY TRANSPLANT REJECTION [None]
  - TUBULOINTERSTITIAL NEPHRITIS [None]
  - URINE OUTPUT DECREASED [None]
